FAERS Safety Report 5455643-3 (Version None)
Quarter: 2007Q3

REPORT INFORMATION
  Report Type: 
  Country: None (occurrence: None)
  Receive Date: 20070914
  Receipt Date: 20070831
  Transmission Date: 20080115
  Serious: Yes (Hospitalization, Disabling)
  Sender: FDA-Public Use
  Company Number: 2007090009

PATIENT
  Age: 43 Year
  Sex: Female

DRUGS (5)
  1. OPTIVAR [Suspect]
     Indication: CONJUNCTIVITIS ALLERGIC
     Dosage: (2 IN 1 D) OCULAR USE
     Dates: start: 20060623, end: 20060905
  2. TOBRADEX [Concomitant]
  3. LOTEMAX [Concomitant]
  4. ACULAR [Concomitant]
  5. REFRESH TEAR [Concomitant]

REACTIONS (5)
  - CAUSTIC INJURY [None]
  - DEPRESSION [None]
  - DRUG HYPERSENSITIVITY [None]
  - KERATOCONJUNCTIVITIS SICCA [None]
  - PUNCTATE KERATITIS [None]
